FAERS Safety Report 17615565 (Version 2)
Quarter: 2020Q2

REPORT INFORMATION
  Report Type: Spontaneous
  Country: US (occurrence: US)
  Receive Date: 20200402
  Receipt Date: 20200427
  Transmission Date: 20200713
  Serious: Yes (Other)
  Sender: FDA-Public Use
  Company Number: US-JNJFOC-20200337968

PATIENT
  Sex: Male

DRUGS (1)
  1. RISPERDAL [Suspect]
     Active Substance: RISPERIDONE
     Indication: PRODUCT USED FOR UNKNOWN INDICATION
     Route: 048

REACTIONS (8)
  - Generalised tonic-clonic seizure [Not Recovered/Not Resolved]
  - Drug ineffective [Unknown]
  - Speech disorder [Unknown]
  - Sleep disorder [Not Recovered/Not Resolved]
  - Withdrawal syndrome [Not Recovered/Not Resolved]
  - Trance [Unknown]
  - Decreased activity [Not Recovered/Not Resolved]
  - Body temperature fluctuation [Unknown]
